FAERS Safety Report 18545340 (Version 2)
Quarter: 2020Q4

REPORT INFORMATION
  Report Type: Spontaneous
  Country: FR (occurrence: FR)
  Receive Date: 20201125
  Receipt Date: 20201217
  Transmission Date: 20210114
  Serious: Yes (Other)
  Sender: FDA-Public Use
  Company Number: FR-AMGEN-FRASP2020190141

PATIENT

DRUGS (1)
  1. PROLIA [Suspect]
     Active Substance: DENOSUMAB
     Indication: NEUROPATHIC ARTHROPATHY
     Dosage: 60 MILLIGRAM
     Route: 065

REACTIONS (2)
  - Off label use [Unknown]
  - Neuropathic arthropathy [Unknown]
